FAERS Safety Report 20838429 (Version 2)
Quarter: 2023Q4

REPORT INFORMATION
  Report Type: Spontaneous
  Country: US (occurrence: US)
  Receive Date: 20220517
  Receipt Date: 20231213
  Transmission Date: 20240110
  Serious: No
  Sender: FDA-Public Use
  Company Number: US-BIOGEN-2021BI01049613

PATIENT
  Age: 60 Year
  Sex: Female

DRUGS (3)
  1. VUMERITY [Suspect]
     Active Substance: DIROXIMEL FUMARATE
     Indication: Multiple sclerosis
     Dosage: ONE 231 MG CAPSULE, BY MOUTH, TWICE A DAY FOR 7 DAYS; THEN, TWO 231 MG CAPSULES (462 MG), BY MOUT...
     Route: 050
     Dates: start: 20210902
  2. VUMERITY [Suspect]
     Active Substance: DIROXIMEL FUMARATE
     Route: 050
  3. VUMERITY [Suspect]
     Active Substance: DIROXIMEL FUMARATE
     Route: 050

REACTIONS (3)
  - Product dose omission in error [Unknown]
  - Constipation [Not Recovered/Not Resolved]
  - Suspected COVID-19 [Unknown]

NARRATIVE: CASE EVENT DATE: 20210901
